FAERS Safety Report 6571945-1 (Version None)
Quarter: 2010Q1

REPORT INFORMATION
  Report Type: 
  Country: None (occurrence: None)
  Receive Date: 20100205
  Receipt Date: 20100129
  Transmission Date: 20100710
  Serious: Yes (Hospitalization)
  Sender: FDA-Public Use
  Company Number: US-WYE-H10584809

PATIENT
  Age: 54 Year
  Sex: Female
  Weight: 50 kg

DRUGS (9)
  1. TEMSIROLIMUS [Suspect]
     Indication: MULTIPLE MYELOMA
     Dosage: 25 MG DAYS 1,8,15,22,29 EVERY 35 DAYS
     Dates: start: 20090706, end: 20090806
  2. DEXAMETHASONE [Concomitant]
     Route: 048
  3. LEVOFLOXACIN [Concomitant]
     Route: 048
  4. ONDANSETRON HYDROCHLORIDE [Concomitant]
     Indication: PROPHYLAXIS OF NAUSEA AND VOMITING
     Route: 048
  5. FILGRASTIM [Concomitant]
     Route: 058
  6. OXYCODONE HCL [Concomitant]
     Route: 048
  7. VALACYCLOVIR HCL [Concomitant]
     Route: 048
  8. BORTEZOMIB [Suspect]
     Indication: MULTIPLE MYELOMA
     Dosage: 1.6 MG/M^2 DAYS 1,8,15,22 EVERY 35 DAYS
     Dates: start: 20090706, end: 20090806
  9. ATORVASTATIN [Concomitant]
     Dosage: ONCE A DAY, DOSE NOT PROVIDED
     Route: 048

REACTIONS (3)
  - FEBRILE NEUTROPENIA [None]
  - INFECTION [None]
  - LEUKOPENIA [None]
